FAERS Safety Report 17023144 (Version 1)
Quarter: 2019Q4

REPORT INFORMATION
  Report Type: Report from Study
  Country: US (occurrence: US)
  Receive Date: 20191112
  Receipt Date: 20191112
  Transmission Date: 20200122
  Serious: Yes (Other)
  Sender: FDA-Public Use
  Company Number: US-BIOGEN-2019BI00804971

PATIENT
  Sex: Male

DRUGS (4)
  1. TECFIDERA [Suspect]
     Active Substance: DIMETHYL FUMARATE
     Route: 048
  2. TECFIDERA [Suspect]
     Active Substance: DIMETHYL FUMARATE
     Dosage: 120MG IN THE AM AND 240MG IN THE PM
     Route: 048
     Dates: start: 20190902
  3. TECFIDERA [Suspect]
     Active Substance: DIMETHYL FUMARATE
     Dosage: 120MG IN THE AM AND 240MG IN THE PM
     Route: 048
     Dates: start: 20190902
  4. TECFIDERA [Suspect]
     Active Substance: DIMETHYL FUMARATE
     Indication: MULTIPLE SCLEROSIS
     Dosage: STARTED OFF SLIGHTLY DIFFERENT: 120MG ONCE A DAY FOR ONE WK, THEN?120MG IN THE AM AND 240MG IN TH...
     Route: 048
     Dates: start: 20190827, end: 20190902

REACTIONS (8)
  - Underdose [Recovered/Resolved]
  - Abdominal pain upper [Recovered/Resolved with Sequelae]
  - Lipase increased [Recovered/Resolved]
  - Pancreatic disorder [Unknown]
  - Balance disorder [Not Recovered/Not Resolved]
  - Headache [Recovered/Resolved]
  - Muscular weakness [Not Recovered/Not Resolved]
  - Memory impairment [Unknown]
